FAERS Safety Report 9947230 (Version 1)
Quarter: 2014Q1

REPORT INFORMATION
  Report Type: Report from Study
  Country: US (occurrence: US)
  Receive Date: 20140303
  Receipt Date: 20140303
  Transmission Date: 20141002
  Serious: Yes (Other)
  Sender: FDA-Public Use
  Company Number: US-ABBVIE-13P-163-1059879-00

PATIENT
  Age: 49 Year
  Sex: Male
  Weight: 104.42 kg

DRUGS (1)
  1. HUMIRA [Suspect]
     Indication: PSORIASIS
     Dates: start: 201207, end: 201211

REACTIONS (7)
  - Flank pain [Recovered/Resolved]
  - Skin mass [Recovered/Resolved]
  - Subcutaneous abscess [Recovered/Resolved]
  - Weight decreased [Recovered/Resolved]
  - Subcutaneous abscess [Recovered/Resolved]
  - Subcutaneous abscess [Recovered/Resolved]
  - Psoriasis [Not Recovered/Not Resolved]
